FAERS Safety Report 20200864 (Version 1)
Quarter: 2021Q4

REPORT INFORMATION
  Report Type: Spontaneous
  Country: US (occurrence: None)
  Receive Date: 20211217
  Receipt Date: 20211217
  Transmission Date: 20220303
  Serious: No
  Sender: FDA-Public Use
  Company Number: None

PATIENT

DRUGS (1)
  1. IMODIUM [Suspect]
     Active Substance: LOPERAMIDE HYDROCHLORIDE
     Route: 048

REACTIONS (12)
  - Incorrect dose administered by product [None]
  - Accidental overdose [None]
  - Dose calculation error [None]
  - Product preparation error [None]
  - Drug monitoring procedure not performed [None]
  - Transcription medication error [None]
  - Extra dose administered [None]
  - Packaging design issue [None]
  - Product label confusion [None]
  - Product label issue [None]
  - Manufacturing process control procedure issue [None]
  - Product barcode issue [None]
